FAERS Safety Report 17561284 (Version 1)
Quarter: 2020Q1

REPORT INFORMATION
  Report Type: Report from Study
  Country: US (occurrence: US)
  Receive Date: 20200319
  Receipt Date: 20200319
  Transmission Date: 20200409
  Serious: Yes (Other)
  Sender: FDA-Public Use
  Company Number: US-GLAXOSMITHKLINE-US2020GSK048711

PATIENT
  Sex: Male

DRUGS (1)
  1. ROLAPITANT HYDROCHLORIDE [Suspect]
     Active Substance: ROLAPITANT
     Indication: BONE CANCER
     Dosage: 90 MG, Z (2 TABLETS EVERY 3 WEEKS)
     Route: 048
     Dates: start: 201910

REACTIONS (7)
  - Prostatomegaly [Unknown]
  - Chest pain [Unknown]
  - Anxiety [Unknown]
  - Depression [Unknown]
  - Arrhythmia [Unknown]
  - Dysuria [Unknown]
  - Vertigo [Unknown]
